FAERS Safety Report 22259221 (Version 1)
Quarter: 2023Q2

REPORT INFORMATION
  Report Type: Spontaneous
  Country: US (occurrence: None)
  Receive Date: 20230426
  Receipt Date: 20230426
  Transmission Date: 20230722
  Serious: No
  Sender: FDA-Public Use
  Company Number: None

PATIENT
  Age: 44 Year
  Sex: Female
  Weight: 74.25 kg

DRUGS (1)
  1. VYVANSE [Suspect]
     Active Substance: LISDEXAMFETAMINE DIMESYLATE
     Indication: Attention deficit hyperactivity disorder
     Dosage: OTHER QUANTITY : 1 CAPSULE(S);?
     Route: 048

REACTIONS (6)
  - Drug ineffective [None]
  - Product formulation issue [None]
  - Negative thoughts [None]
  - Anxiety [None]
  - Somnolence [None]
  - Disturbance in attention [None]

NARRATIVE: CASE EVENT DATE: 20230201
